FAERS Safety Report 17594012 (Version 2)
Quarter: 2020Q2

REPORT INFORMATION
  Report Type: Report from Study
  Country: AU (occurrence: AU)
  Receive Date: 20200327
  Receipt Date: 20200506
  Transmission Date: 20200713
  Serious: Yes (Other)
  Sender: FDA-Public Use
  Company Number: AU-ASTRAZENECA-2020SE05707

PATIENT
  Sex: Male

DRUGS (16)
  1. FASENRA [Suspect]
     Active Substance: BENRALIZUMAB
     Indication: ASTHMA
     Dosage: 30 MG MONTHLY X 5, 2 MONTHLY X 4
     Route: 058
     Dates: start: 201808, end: 201909
  2. ESOMEPAZ [Concomitant]
     Route: 065
  3. APOTEX [Concomitant]
     Route: 065
  4. AZITHROMYCIN ANHYDROUS. [Concomitant]
     Active Substance: AZITHROMYCIN ANHYDROUS
     Indication: ASTHMA
     Dosage: 250.0MG UNKNOWN
     Route: 048
  5. PERINDOPRIL [Concomitant]
     Active Substance: PERINDOPRIL
     Route: 065
  6. COLOXYL [Concomitant]
     Dosage: 8 MG 2 X 2
     Route: 065
  7. CLOPIDOGREL [Concomitant]
     Active Substance: CLOPIDOGREL BISULFATE
     Indication: MYOCARDIAL ISCHAEMIA
     Dosage: 75.0MG UNKNOWN
     Route: 048
  8. VENTOLIN [Concomitant]
     Active Substance: ALBUTEROL SULFATE
     Indication: ASTHMA
     Route: 055
  9. AMITRIPTYLINE [Concomitant]
     Active Substance: AMITRIPTYLINE
     Dosage: 25.0MG UNKNOWN
     Route: 065
  10. MONTELEUKAST [Concomitant]
     Active Substance: MONTELUKAST SODIUM
     Indication: ASTHMA
     Dosage: 10.0MG UNKNOWN
     Route: 048
  11. FRUSEMIDE [Concomitant]
     Active Substance: FUROSEMIDE
     Route: 065
  12. PLAVIX [Concomitant]
     Active Substance: CLOPIDOGREL BISULFATE
     Route: 065
  13. SERETIDE [Concomitant]
     Active Substance: FLUTICASONE PROPIONATE\SALMETEROL XINAFOATE
     Indication: ASTHMA
     Dosage: 250/25
     Route: 055
  14. OSTEOMOL 665 [Concomitant]
     Dosage: SR X 2
     Route: 065
  15. SPIRIVA [Concomitant]
     Active Substance: TIOTROPIUM BROMIDE MONOHYDRATE
     Indication: ASTHMA
     Dosage: 5.0UG UNKNOWN
     Route: 065
  16. AMIODARONE [Concomitant]
     Active Substance: AMIODARONE
     Route: 065

REACTIONS (4)
  - Paraesthesia oral [Recovering/Resolving]
  - Hypersensitivity [Recovering/Resolving]
  - Dizziness [Recovering/Resolving]
  - Muscle spasticity [Recovering/Resolving]
